FAERS Safety Report 16874842 (Version 1)
Quarter: 2019Q4

REPORT INFORMATION
  Report Type: Spontaneous
  Country: AU (occurrence: AU)
  Receive Date: 20191001
  Receipt Date: 20191001
  Transmission Date: 20200122
  Serious: Yes (Other)
  Sender: FDA-Public Use
  Company Number: PHHY2019AU226446

PATIENT
  Age: 26 Year
  Sex: Male

DRUGS (3)
  1. PROCHLORPERAZINE. [Suspect]
     Active Substance: PROCHLORPERAZINE
     Indication: VOMITING
     Dosage: UNK
     Route: 030
  2. ONDANSETRON [Suspect]
     Active Substance: ONDANSETRON
     Indication: VOMITING
     Dosage: UNK
     Route: 048
  3. METOCLOPRAMIDE. [Suspect]
     Active Substance: METOCLOPRAMIDE
     Indication: VOMITING
     Dosage: UNK
     Route: 030

REACTIONS (4)
  - Spasmodic dysphonia [Recovered/Resolved]
  - Swollen tongue [Recovered/Resolved]
  - Oropharyngeal discomfort [Recovered/Resolved]
  - Dysphonia [Unknown]
